FAERS Safety Report 9351137 (Version 2)
Quarter: 2013Q2

REPORT INFORMATION
  Report Type: Spontaneous
  Country: GB (occurrence: GB)
  Receive Date: 20130617
  Receipt Date: 20130626
  Transmission Date: 20140414
  Serious: Yes (Hospitalization)
  Sender: FDA-Public Use
  Company Number: GB-GE HEALTHCARE MEDICAL DIAGNOSTICS-OMPQ-NO-1306S-0727

PATIENT
  Age: 60 Year
  Sex: Female

DRUGS (6)
  1. OMNIPAQUE [Suspect]
     Indication: URINARY TRACT DISORDER
     Route: 042
     Dates: start: 20130514, end: 20130514
  2. OMNIPAQUE [Suspect]
     Indication: DIAGNOSTIC PROCEDURE
  3. GTN [Concomitant]
  4. PROMAZINE [Concomitant]
  5. GABAPENTIN [Concomitant]
  6. EZETIMIBE [Concomitant]

REACTIONS (2)
  - Herpes zoster [Unknown]
  - Chills [Recovered/Resolved]
